FAERS Safety Report 9638391 (Version 1)
Quarter: 2013Q4

REPORT INFORMATION
  Report Type: Spontaneous
  Country: US (occurrence: None)
  Receive Date: 20131021
  Receipt Date: 20131021
  Transmission Date: 20140711
  Serious: Yes (Hospitalization)
  Sender: FDA-Public Use
  Company Number: None

PATIENT
  Age: 76 Year
  Sex: Male
  Weight: 91.5 kg

DRUGS (1)
  1. WARFARIN [Suspect]
     Indication: THROMBOSIS IN DEVICE
     Dates: start: 20130926, end: 20131016

REACTIONS (8)
  - Coagulopathy [None]
  - Haematuria [None]
  - Abdominal pain [None]
  - Asthenia [None]
  - International normalised ratio increased [None]
  - Small intestinal obstruction [None]
  - Nephrolithiasis [None]
  - Haemorrhage [None]
